FAERS Safety Report 24292910 (Version 1)
Quarter: 2024Q3

REPORT INFORMATION
  Report Type: Spontaneous
  Country: US (occurrence: None)
  Receive Date: 20240906
  Receipt Date: 20240906
  Transmission Date: 20241016
  Serious: No
  Sender: DOMPE FARMACEUTICI
  Company Number: US-FARMAPROD-202311-3224

PATIENT
  Sex: Female

DRUGS (17)
  1. OXERVATE [Suspect]
     Active Substance: CENEGERMIN-BKBJ
     Indication: Neurotrophic keratopathy
     Route: 047
     Dates: start: 20221206, end: 20230208
  2. OXERVATE [Suspect]
     Active Substance: CENEGERMIN-BKBJ
     Route: 047
     Dates: start: 20231019
  3. OXERVATE [Suspect]
     Active Substance: CENEGERMIN-BKBJ
  4. BUTALBITAL-ACETAMINOPHEN-CAFFE [Concomitant]
  5. BREO ELLIPTA [Concomitant]
     Active Substance: FLUTICASONE FUROATE\VILANTEROL TRIFENATATE
     Dosage: 100-25MCG BLISTER WITH DEVICE.
  6. VITAMIN B12 [Concomitant]
     Active Substance: CYANOCOBALAMIN
  7. MONTELUKAST SODIUM [Concomitant]
     Active Substance: MONTELUKAST\MONTELUKAST SODIUM
  8. ASPIRIN [Concomitant]
     Active Substance: ASPIRIN
  9. CLONIDINE HYDROCHLORIDE [Concomitant]
     Active Substance: CLONIDINE HYDROCHLORIDE
  10. OMEPRAZOLE [Concomitant]
     Active Substance: OMEPRAZOLE
  11. ATORVASTATIN CALCIUM [Concomitant]
     Active Substance: ATORVASTATIN CALCIUM
  12. JANUMET [Concomitant]
     Active Substance: METFORMIN HYDROCHLORIDE\SITAGLIPTIN PHOSPHATE
     Dosage: 50-1000 MG
  13. AMLODIPINE BESYLATE [Concomitant]
     Active Substance: AMLODIPINE BESYLATE
  14. ATENOLOL [Concomitant]
     Active Substance: ATENOLOL
  15. TRAZODONE HCL [Concomitant]
     Active Substance: TRAZODONE HYDROCHLORIDE
  16. HYDROCHLOROTHIAZIDE [Concomitant]
     Active Substance: HYDROCHLOROTHIAZIDE
  17. MELOXICAM [Concomitant]
     Active Substance: MELOXICAM

REACTIONS (1)
  - Weight decreased [Unknown]
